FAERS Safety Report 25372080 (Version 6)
Quarter: 2025Q4

REPORT INFORMATION
  Report Type: Report from Study
  Country: US (occurrence: US)
  Receive Date: 20250529
  Receipt Date: 20251120
  Transmission Date: 20260117
  Serious: Yes (Hospitalization, Other)
  Sender: TAKEDA
  Company Number: US-TAKEDA-2025TUS049471

PATIENT
  Sex: Female
  Weight: 68 kg

DRUGS (48)
  1. HUMAN IMMUNOGLOBULIN G\HYALURONIDASE RECOMBINANT HUMAN [Suspect]
     Active Substance: HUMAN IMMUNOGLOBULIN G\HYALURONIDASE (HUMAN RECOMBINANT)
     Indication: Hypogammaglobulinaemia
     Dosage: 35 GRAM, Q4WEEKS
  2. INFLUENZA VIRUS VACCINE [Suspect]
     Active Substance: INFLUENZA VIRUS VACCINE
     Indication: Product used for unknown indication
     Dosage: UNK
     Dates: start: 20251116, end: 20251116
  3. COVID-19 VACCINE NOS [Suspect]
     Active Substance: COVID-19 VACCINE
     Indication: Product used for unknown indication
     Dosage: UNK
     Dates: start: 20251116, end: 20251116
  4. ACETAMINOPHEN [Concomitant]
     Active Substance: ACETAMINOPHEN
     Dosage: UNK
  5. EPINEPHRINE [Concomitant]
     Active Substance: EPINEPHRINE
     Dosage: UNK
  6. SODIUM CHLORIDE [Concomitant]
     Active Substance: SODIUM CHLORIDE
     Dosage: UNK
  7. ATORVASTATIN CALCIUM [Concomitant]
     Active Substance: ATORVASTATIN CALCIUM
     Dosage: UNK
  8. CEPHALEXIN [Concomitant]
     Active Substance: CEPHALEXIN
     Dosage: UNK
  9. DULOXETINE HYDROCHLORIDE [Concomitant]
     Active Substance: DULOXETINE HYDROCHLORIDE
     Dosage: UNK
  10. FAMOTIDINE [Concomitant]
     Active Substance: FAMOTIDINE
     Dosage: UNK
  11. FUROSEMIDE [Concomitant]
     Active Substance: FUROSEMIDE
     Dosage: UNK
  12. LEVOTHYROXINE SODIUM [Concomitant]
     Active Substance: LEVOTHYROXINE SODIUM
     Dosage: UNK
  13. MELOXICAM [Concomitant]
     Active Substance: MELOXICAM
     Dosage: UNK
  14. METHOCARBAMOL [Concomitant]
     Active Substance: METHOCARBAMOL
     Dosage: UNK
  15. Dulcolax [Concomitant]
     Dosage: UNK
  16. METHENAMINE HIPPURATE [Concomitant]
     Active Substance: METHENAMINE HIPPURATE
     Dosage: UNK
  17. MOTEGRITY [Concomitant]
     Active Substance: PRUCALOPRIDE SUCCINATE
     Dosage: UNK
  18. VILAZODONE HYDROCHLORIDE [Concomitant]
     Active Substance: VILAZODONE HYDROCHLORIDE
     Dosage: UNK
  19. REXULTI [Concomitant]
     Active Substance: BREXPIPRAZOLE
     Dosage: UNK
  20. FESOTERODINE FUMARATE [Concomitant]
     Active Substance: FESOTERODINE FUMARATE
     Dosage: UNK
  21. ESOMEPRAZOLE MAGNESIUM [Concomitant]
     Active Substance: ESOMEPRAZOLE MAGNESIUM
     Dosage: UNK
  22. ALBUTEROL SULFATE [Concomitant]
     Active Substance: ALBUTEROL SULFATE
     Dosage: UNK
  23. Hyper [Concomitant]
     Dosage: UNK
  24. LINZESS [Concomitant]
     Active Substance: LINACLOTIDE
     Dosage: UNK
  25. TRELEGY ELLIPTA [Concomitant]
     Active Substance: FLUTICASONE FUROATE\UMECLIDINIUM BROMIDE\VILANTEROL TRIFENATATE
     Dosage: UNK
  26. BISACODYL [Concomitant]
     Active Substance: BISACODYL
     Dosage: UNK
  27. LIDOCAINE [Concomitant]
     Active Substance: LIDOCAINE
     Dosage: UNK
  28. DIAZEPAM [Concomitant]
     Active Substance: DIAZEPAM
     Dosage: UNK
  29. MUCINEX [Concomitant]
     Active Substance: GUAIFENESIN
     Dosage: UNK
  30. PREGABALIN [Concomitant]
     Active Substance: PREGABALIN
     Dosage: UNK
  31. CALCIUM CITRATE [Concomitant]
     Active Substance: CALCIUM CITRATE
     Dosage: UNK
  32. ZOLPIDEM TARTRATE [Concomitant]
     Active Substance: ZOLPIDEM TARTRATE
     Dosage: UNK
  33. ASPIRIN [Concomitant]
     Active Substance: ASPIRIN
     Dosage: UNK
  34. MONTELUKAST SODIUM [Concomitant]
     Active Substance: MONTELUKAST SODIUM
     Dosage: UNK
  35. PROMETHAZINE HYDROCHLORIDE [Concomitant]
     Active Substance: PROMETHAZINE HYDROCHLORIDE
     Dosage: UNK
  36. DIPHENHYDRAMINE HYDROCHLORIDE [Concomitant]
     Active Substance: DIPHENHYDRAMINE HYDROCHLORIDE
     Dosage: UNK
  37. SYMPROIC [Concomitant]
     Active Substance: NALDEMEDINE TOSYLATE
     Dosage: UNK
  38. VITAMIN D3 [Concomitant]
     Active Substance: CHOLECALCIFEROL
     Dosage: UNK
  39. ATROPINE\DIPHENOXYLATE [Concomitant]
     Active Substance: ATROPINE\DIPHENOXYLATE
     Dosage: UNK
  40. ZYRTEC [Concomitant]
     Active Substance: CETIRIZINE HYDROCHLORIDE
     Dosage: UNK
  41. ESTRADIOL [Concomitant]
     Active Substance: ESTRADIOL
     Dosage: UNK
  42. MYRBETRIQ [Concomitant]
     Active Substance: MIRABEGRON
     Dosage: UNK
  43. ONDANSETRON HYDROCHLORIDE [Concomitant]
     Active Substance: ONDANSETRON HYDROCHLORIDE
     Dosage: UNK
  44. POTASSIUM CHLORIDE [Concomitant]
     Active Substance: POTASSIUM CHLORIDE
     Dosage: UNK
  45. TRIAMCINOLONE ACETONIDE [Concomitant]
     Active Substance: TRIAMCINOLONE ACETONIDE
     Dosage: UNK
  46. HYDROMORPHONE HCL [Concomitant]
     Active Substance: HYDROMORPHONE HYDROCHLORIDE
     Dosage: UNK
  47. MAGNESIUM CITRATE [Concomitant]
     Active Substance: MAGNESIUM CITRATE
     Dosage: UNK
  48. ALBUTEROL SULFATE [Concomitant]
     Active Substance: ALBUTEROL SULFATE
     Dosage: UNK

REACTIONS (7)
  - Subdural haematoma [Unknown]
  - Cerebral haemorrhage [Unknown]
  - Urinary tract infection [Unknown]
  - Fall [Unknown]
  - Synovial cyst [Unknown]
  - Head injury [Unknown]
  - Pain [Unknown]
